FAERS Safety Report 4498356-7 (Version None)
Quarter: 2004Q4

REPORT INFORMATION
  Report Type: 
  Country: None (occurrence: None)
  Receive Date: 20041105
  Receipt Date: 20041025
  Transmission Date: 20050328
  Serious: Yes (Life-Threatening, Hospitalization, Other)
  Sender: FDA-Public Use
  Company Number: 2004-DE-05585DE

PATIENT
  Age: 61 Year
  Sex: Male

DRUGS (7)
  1. AGGRENOX (TAD) (ACETYLSALICYLIC ACID, DIPYRIDAMOLE) [Suspect]
     Indication: CEREBROVASCULAR ACCIDENT
     Dosage: (SEE TEXT, 1 IN 2 D) PO
     Route: 048
     Dates: start: 20020101, end: 20040225
  2. ACETYLSALICYLIC ACID SRT [Suspect]
     Indication: CEREBROVASCULAR ACCIDENT
     Dosage: 100 MG, 1 IN 1 D PO
     Route: 048
     Dates: start: 20020101, end: 20040225
  3. ALLOPURINOL (TA) [Concomitant]
  4. ARELIX ACE (ARELIX ACE) (TA) [Concomitant]
  5. CONCOR COR (BISOPROLOL) (TAF) [Concomitant]
  6. METFORMIN (METFORMIN) (TAF) [Concomitant]
  7. SIMVAHEXAL (TAF) [Concomitant]

REACTIONS (12)
  - ALANINE AMINOTRANSFERASE INCREASED [None]
  - ASPARTATE AMINOTRANSFERASE INCREASED [None]
  - BLOOD CREATININE INCREASED [None]
  - GAMMA-GLUTAMYLTRANSFERASE ABNORMAL [None]
  - GASTROINTESTINAL ULCER HAEMORRHAGE [None]
  - GENERAL PHYSICAL HEALTH DETERIORATION [None]
  - HAEMATOCRIT DECREASED [None]
  - HAEMOGLOBIN DECREASED [None]
  - LABORATORY TEST ABNORMAL [None]
  - PROTHROMBIN TIME SHORTENED [None]
  - SHOCK HAEMORRHAGIC [None]
  - VERTIGO [None]
